FAERS Safety Report 6474693-1 (Version None)
Quarter: 2010Q1

REPORT INFORMATION
  Report Type: 
  Country: None (occurrence: None)
  Receive Date: 20091204
  Receipt Date: 20091130
  Transmission Date: 20100710
  Serious: Yes (Hospitalization, Congenital Anomaly)
  Sender: FDA-Public Use
  Company Number: A0772876A

PATIENT
  Sex: Male

DRUGS (2)
  1. PAROXETINE HCL [Suspect]
     Indication: ANXIETY
     Dosage: 10MG UNKNOWN
  2. BUSPAR [Concomitant]
     Indication: DEPRESSION

REACTIONS (5)
  - CARDIAC FAILURE CONGESTIVE [None]
  - DRUG EXPOSURE DURING PREGNANCY [None]
  - GASTROOESOPHAGEAL REFLUX DISEASE [None]
  - RIGHT VENTRICLE OUTFLOW TRACT OBSTRUCTION [None]
  - VENTRICULAR SEPTAL DEFECT [None]
